FAERS Safety Report 5051950-7 (Version None)
Quarter: 2006Q3

REPORT INFORMATION
  Report Type: 
  Country: None (occurrence: None)
  Receive Date: 20060710
  Receipt Date: 20060627
  Transmission Date: 20061208
  Serious: Yes (Other)
  Sender: FDA-Public Use
  Company Number: 2006-144676-NL

PATIENT
  Age: 29 Year
  Sex: Female
  Weight: 65.8 kg

DRUGS (1)
  1. NUVARING [Suspect]
     Indication: CONTRACEPTION
     Dosage: VAGINAL, 3 WEEKS IN. 1 WEEK OUT
     Route: 067
     Dates: start: 20060615

REACTIONS (3)
  - ANXIETY [None]
  - HEADACHE [None]
  - PANIC ATTACK [None]
